FAERS Safety Report 9011599 (Version 2)
Quarter: 2013Q1

REPORT INFORMATION
  Report Type: Spontaneous
  Country: US (occurrence: US)
  Receive Date: 20130108
  Receipt Date: 20130116
  Transmission Date: 20140127
  Serious: No
  Sender: FDA-Public Use
  Company Number: US-B.I. PHARMACEUTICALS,INC./RIDGEFIELD-2012-BI-03936BP

PATIENT
  Age: 69 Year
  Sex: Male

DRUGS (3)
  1. PRADAXA [Suspect]
     Dosage: 300 MG
     Route: 048
  2. AMIODARONE [Concomitant]
     Indication: ARRHYTHMIA
     Dosage: 200 MG
     Route: 048
  3. FLOMAX [Concomitant]
     Indication: BENIGN PROSTATIC HYPERPLASIA
     Dosage: 0.4 MG
     Route: 048

REACTIONS (3)
  - Foreign body [Recovered/Resolved]
  - Cough [Recovered/Resolved]
  - Product quality issue [Recovered/Resolved]
